FAERS Safety Report 7811297 (Version 2)
Quarter: 2012Q4

REPORT INFORMATION
  Report Type: Report from Study
  Country: IT (occurrence: IT)
  Receive Date: 20110214
  Receipt Date: 20121008
  Transmission Date: 20130627
  Serious: Yes (Hospitalization)
  Sender: FDA-Public Use
  Company Number: IT-JNJFOC-20110201693

PATIENT
  Age: 12 Year
  Sex: Male
  Weight: 37.5 kg

DRUGS (7)
  1. REMICADE [Suspect]
     Indication: CROHN^S DISEASE
     Route: 042
     Dates: start: 20101118
  2. REMICADE [Suspect]
     Indication: CROHN^S DISEASE
     Route: 042
     Dates: start: 20101105
  3. AZATHIOPRINE [Concomitant]
  4. ANTIHISTAMINE [Concomitant]
  5. ANTIBIOTICS [Concomitant]
     Indication: CROHN^S DISEASE
  6. OMEPRAZOLE [Concomitant]
  7. PREDNISONE [Concomitant]

REACTIONS (1)
  - Crohn^s disease [Recovered/Resolved with Sequelae]
